FAERS Safety Report 9716325 (Version 1)
Quarter: 2013Q4

REPORT INFORMATION
  Report Type: Spontaneous
  Country: US (occurrence: US)
  Receive Date: 20131127
  Receipt Date: 20131127
  Transmission Date: 20140711
  Serious: No
  Sender: FDA-Public Use
  Company Number: US-ENDO PHARMACEUTICALS INC.-HCDA20110013

PATIENT
  Sex: Female

DRUGS (4)
  1. HYDROCODONE/ACETAMINOPHEN 7.5MG/750MG [Suspect]
     Indication: PAIN
     Route: 048
     Dates: start: 201008
  2. IBUPROFEN [Concomitant]
  3. PERCOCET [Concomitant]
     Route: 048
  4. ORAL CONTRACEPTIVE PILLS [Concomitant]

REACTIONS (1)
  - Drug ineffective [Unknown]
